FAERS Safety Report 19399599 (Version 1)
Quarter: 2021Q2

REPORT INFORMATION
  Report Type: Spontaneous
  Country: IT (occurrence: IT)
  Receive Date: 20210610
  Receipt Date: 20210610
  Transmission Date: 20210717
  Serious: Yes (Other)
  Sender: FDA-Public Use
  Company Number: IT-TAKEDA-2021TUS033832

PATIENT
  Age: 51 Year
  Sex: Male
  Weight: 100 kg

DRUGS (13)
  1. FENTANYL. [Suspect]
     Active Substance: FENTANYL
     Dosage: 200 MCG, UNK
     Route: 065
  2. FENTANYL. [Suspect]
     Active Substance: FENTANYL
     Indication: MAINTENANCE OF ANAESTHESIA
     Dosage: 900 MCG/KG TOTAL AMOUNT OF FENTANYL
     Route: 065
  3. FENTANYL. [Suspect]
     Active Substance: FENTANYL
     Dosage: 1 MCG/KG PER 30 MINUTES TILL CPB
     Route: 065
  4. ROCURONIUM [Suspect]
     Active Substance: ROCURONIUM BROMIDE
     Indication: INDUCTION OF ANAESTHESIA
     Dosage: 70 MG, UNK
     Route: 065
  5. FENTANYL. [Suspect]
     Active Substance: FENTANYL
     Indication: INDUCTION OF ANAESTHESIA
     Dosage: 50 MCG
     Route: 042
  6. SEVOFLURANE. [Suspect]
     Active Substance: SEVOFLURANE
     Indication: MAINTENANCE OF ANAESTHESIA
     Dosage: 0.9 %, UNK
     Route: 065
  7. PROPOFOL. [Suspect]
     Active Substance: PROPOFOL
     Indication: MAINTENANCE OF ANAESTHESIA
     Dosage: 3 MCG/ML PLASMA TARGET
     Route: 065
  8. CALCIUM HEPARIN [Concomitant]
     Active Substance: HEPARIN CALCIUM
     Indication: THROMBOSIS PROPHYLAXIS
     Dosage: 12500 IU/24H WITH THE LAST ADMINISTRATION
     Route: 058
  9. FLUCONAZOL [Concomitant]
     Active Substance: FLUCONAZOLE
     Indication: PROPHYLAXIS
     Dosage: PROPHYLACTIC DOSE
     Route: 065
  10. CISATRACURIUM. [Suspect]
     Active Substance: CISATRACURIUM
     Indication: MAINTENANCE OF ANAESTHESIA
     Dosage: UNK UNK
     Route: 065
  11. ECULIZUMAB [Concomitant]
     Active Substance: ECULIZUMAB
     Indication: PAROXYSMAL NOCTURNAL HAEMOGLOBINURIA
     Dosage: 900 MILLIGRAM, Q2WEEKS
     Route: 042
  12. PROPOFOL. [Suspect]
     Active Substance: PROPOFOL
     Indication: INDUCTION OF ANAESTHESIA
     Dosage: 3.5 MCG/ML PLASMA TARGET IN 3 MINUTES
     Route: 065
  13. PIPERACILLIN/TAZOBACTAM [Concomitant]
     Active Substance: PIPERACILLIN SODIUM\TAZOBACTAM SODIUM
     Indication: PROPHYLAXIS
     Dosage: PROPHYLACTIC DOSE
     Route: 065

REACTIONS (3)
  - Procedural haemorrhage [Unknown]
  - Haemoglobin decreased [Unknown]
  - Coagulation time prolonged [Unknown]
